FAERS Safety Report 16557050 (Version 1)
Quarter: 2019Q3

REPORT INFORMATION
  Report Type: Spontaneous
  Country: US (occurrence: US)
  Receive Date: 20190711
  Receipt Date: 20190711
  Transmission Date: 20191004
  Serious: Yes (Hospitalization)
  Sender: FDA-Public Use
  Company Number: US-ROCHE-2352376

PATIENT
  Age: 29 Year
  Sex: Female

DRUGS (14)
  1. THALOMID [Suspect]
     Active Substance: THALIDOMIDE
     Indication: CUTANEOUS LUPUS ERYTHEMATOSUS
     Route: 048
     Dates: start: 201812
  2. BENLYSTA [Concomitant]
     Active Substance: BELIMUMAB
     Indication: SYSTEMIC LUPUS ERYTHEMATOSUS
     Route: 065
     Dates: start: 201612
  3. METHOTREXATE. [Concomitant]
     Active Substance: METHOTREXATE
     Indication: OFF LABEL USE
  4. PLAQUENIL [Concomitant]
     Active Substance: HYDROXYCHLOROQUINE SULFATE
     Indication: SYSTEMIC LUPUS ERYTHEMATOSUS
     Route: 065
     Dates: start: 2013
  5. CELLCEPT [Suspect]
     Active Substance: MYCOPHENOLATE MOFETIL\MYCOPHENOLATE MOFETIL HYDROCHLORIDE
     Indication: SYSTEMIC LUPUS ERYTHEMATOSUS
     Route: 065
     Dates: start: 2013
  6. BENLYSTA [Concomitant]
     Active Substance: BELIMUMAB
     Indication: OFF LABEL USE
  7. PREDNISONE. [Concomitant]
     Active Substance: PREDNISONE
     Indication: OFF LABEL USE
  8. THALOMID [Suspect]
     Active Substance: THALIDOMIDE
     Indication: OFF LABEL USE
  9. DULOXETINE. [Concomitant]
     Active Substance: DULOXETINE
     Indication: OSTEOARTHRITIS
     Route: 065
     Dates: start: 20190617
  10. PREDNISONE. [Concomitant]
     Active Substance: PREDNISONE
     Indication: SYSTEMIC LUPUS ERYTHEMATOSUS
     Route: 065
     Dates: start: 2013
  11. THALOMID [Suspect]
     Active Substance: THALIDOMIDE
     Indication: ERYTHEMA NODOSUM
  12. DULOXETINE. [Concomitant]
     Active Substance: DULOXETINE
     Indication: OFF LABEL USE
  13. PLAQUENIL [Concomitant]
     Active Substance: HYDROXYCHLOROQUINE SULFATE
     Indication: OFF LABEL USE
  14. CELLCEPT [Suspect]
     Active Substance: MYCOPHENOLATE MOFETIL\MYCOPHENOLATE MOFETIL HYDROCHLORIDE
     Indication: OFF LABEL USE

REACTIONS (3)
  - Off label use [Unknown]
  - Lupus nephritis [Recovering/Resolving]
  - Intentional product use issue [Unknown]

NARRATIVE: CASE EVENT DATE: 20190512
